FAERS Safety Report 7627253-0 (Version None)
Quarter: 2011Q3

REPORT INFORMATION
  Report Type: 
  Country: None (occurrence: None)
  Receive Date: 20110721
  Receipt Date: 20110712
  Transmission Date: 20111222
  Serious: Yes (Hospitalization, Other)
  Sender: FDA-Public Use
  Company Number: PHEH2007US11023

PATIENT
  Sex: Male

DRUGS (64)
  1. STEROIDS NOS [Concomitant]
  2. DOCUSATE [Concomitant]
  3. ZANTAC [Concomitant]
  4. FOLIC ACID [Concomitant]
  5. CELEXA [Concomitant]
     Dosage: UNK
  6. AMPICILLIN SODIUM [Concomitant]
  7. RANITIDINE [Concomitant]
  8. ARANESP [Concomitant]
  9. OXYCODONE AND ACETAMINOPHEN [Concomitant]
  10. FOSINOPRIL SODIUM [Concomitant]
     Dosage: 40 MG BY MOUTH DAILY IN THE MORINING
  11. ASPIRIN [Concomitant]
  12. TORADOL [Concomitant]
  13. FINASTERIDE [Concomitant]
  14. TAMSULOSIN HCL [Concomitant]
  15. DETROL [Concomitant]
  16. RETIN-A [Concomitant]
  17. DEXAMETHASONE [Concomitant]
  18. GATIFLOXACIN [Concomitant]
  19. GABAPENTIN [Concomitant]
  20. GLUCOSAMINE SULFATE W/CHONDROITIN [Concomitant]
  21. CHLORHEXIDINE ^CCS^ [Concomitant]
     Dosage: UNK
  22. PEPCID [Concomitant]
  23. ALBUTEROL SULFATE AUTOHALER [Concomitant]
  24. CITALOPRAM HYDROBROMIDE [Concomitant]
  25. ZINC OXIDE [Concomitant]
  26. LASIX [Concomitant]
  27. ALDARA [Concomitant]
  28. IBUPROFEN [Concomitant]
  29. WARFARIN SODIUM [Concomitant]
  30. OXYBUTYNIN [Concomitant]
  31. TERAZOSIN HCL [Concomitant]
  32. LIDOCAINE HCL VISCOUS [Concomitant]
  33. CEFAZOLIN [Concomitant]
  34. LACTULOSE [Concomitant]
  35. FLUOCINOLONE ACETONIDE [Concomitant]
  36. CELEBREX [Concomitant]
     Dosage: 200 MG DAILY
  37. MAALOX                                  /NET/ [Concomitant]
  38. SIMVASTATIN [Concomitant]
  39. FUROSEMIDE [Concomitant]
  40. TRIAMCINOLONE ACETONIDE [Concomitant]
  41. LISINOPRIL [Concomitant]
  42. DECADRON [Concomitant]
  43. AUGMENTIN '125' [Concomitant]
  44. PROCRIT                            /00909301/ [Concomitant]
     Dosage: 40 K EACH WEEK
  45. CITALOPRAM [Concomitant]
  46. ULTRAM [Concomitant]
  47. ASPIRIN [Concomitant]
  48. AREDIA [Suspect]
  49. THALIDOMIDE [Concomitant]
     Dosage: UNK
     Dates: end: 20050525
  50. CALCIUM WITH VITAMIN D [Concomitant]
  51. ACETAMINOPHEN [Concomitant]
     Dosage: UNK
  52. MAGNESIUM CITRATE [Concomitant]
  53. SENNOSIDE [Concomitant]
  54. COUMADIN [Concomitant]
  55. CEPHALEXIN [Concomitant]
  56. ONDANSETRON [Concomitant]
  57. DARBEPOETIN ALFA [Concomitant]
  58. ZOMETA [Suspect]
     Indication: MULTIPLE MYELOMA
     Dosage: 30 MG, QMO
     Route: 042
     Dates: end: 20050525
  59. COLACE [Concomitant]
  60. SENNA [Concomitant]
  61. PREDNISOLONE ACETATE [Concomitant]
  62. GENTAMYCIN-MP [Concomitant]
  63. DOVONEX [Concomitant]
  64. KEFLEX [Concomitant]

REACTIONS (100)
  - INFECTION [None]
  - BONE LOSS [None]
  - DIARRHOEA [None]
  - ELECTROCARDIOGRAM QRS COMPLEX PROLONGED [None]
  - CATARACT [None]
  - BURSITIS [None]
  - CANDIDIASIS [None]
  - PAIN IN EXTREMITY [None]
  - DEEP VEIN THROMBOSIS [None]
  - MITRAL VALVE INCOMPETENCE [None]
  - BALANCE DISORDER [None]
  - PLEURAL EFFUSION [None]
  - NEPHROLITHIASIS [None]
  - CHOLELITHIASIS [None]
  - HAEMATURIA [None]
  - COLONIC POLYP [None]
  - BUNDLE BRANCH BLOCK RIGHT [None]
  - SPINAL FRACTURE [None]
  - LIFE EXPECTANCY SHORTENED [None]
  - SINUS ARRHYTHMIA [None]
  - OSTEOSCLEROSIS [None]
  - SEBORRHOEIC DERMATITIS [None]
  - MITRAL VALVE PROLAPSE [None]
  - BODY HEIGHT DECREASED [None]
  - AORTIC VALVE INCOMPETENCE [None]
  - CARDIAC FAILURE CONGESTIVE [None]
  - ATELECTASIS [None]
  - DEPRESSION [None]
  - CONSTIPATION [None]
  - HYPOXIA [None]
  - HYPOPHAGIA [None]
  - LEFT VENTRICULAR HYPERTROPHY [None]
  - OSTEOARTHRITIS [None]
  - MUSCULOSKELETAL DISCOMFORT [None]
  - HIATUS HERNIA [None]
  - WHEEZING [None]
  - JOINT STIFFNESS [None]
  - COAGULOPATHY [None]
  - PAIN IN JAW [None]
  - WALKING AID USER [None]
  - HYPOTENSION [None]
  - DYSPNOEA [None]
  - HEPATIC CYST [None]
  - ISCHAEMIA [None]
  - PSORIASIS [None]
  - OSTEONECROSIS OF JAW [None]
  - DECREASED INTEREST [None]
  - DEFORMITY [None]
  - BONE LESION [None]
  - BACK INJURY [None]
  - GASTROOESOPHAGEAL REFLUX DISEASE [None]
  - CARDIOMEGALY [None]
  - CARDIAC VALVE DISEASE [None]
  - EPISTAXIS [None]
  - SKIN LESION [None]
  - NASAL CONGESTION [None]
  - URGE INCONTINENCE [None]
  - HYPONATRAEMIA [None]
  - PERIODONTAL DISEASE [None]
  - EMOTIONAL DISTRESS [None]
  - PAIN [None]
  - OVERDOSE [None]
  - ANAEMIA [None]
  - ORAL PAIN [None]
  - ESSENTIAL HYPERTENSION [None]
  - GINGIVITIS [None]
  - URINARY TRACT INFECTION [None]
  - RENAL FAILURE CHRONIC [None]
  - TYMPANOSCLEROSIS [None]
  - VOCAL CORD INFLAMMATION [None]
  - PHARYNGITIS [None]
  - POLLAKIURIA [None]
  - PLANTAR FASCIITIS [None]
  - OTITIS EXTERNA [None]
  - TOOTH INFECTION [None]
  - ROAD TRAFFIC ACCIDENT [None]
  - BASAL CELL CARCINOMA [None]
  - RENAL FAILURE ACUTE [None]
  - SPINAL COLUMN STENOSIS [None]
  - DYSPNOEA EXERTIONAL [None]
  - PULMONARY EMBOLISM [None]
  - MERALGIA PARAESTHETICA [None]
  - STOMATITIS [None]
  - SINUS BRADYCARDIA [None]
  - NEURALGIA [None]
  - BACK PAIN [None]
  - HYPERHIDROSIS [None]
  - HYPOAESTHESIA [None]
  - BONE DISORDER [None]
  - SWELLING [None]
  - INTERVERTEBRAL DISC DEGENERATION [None]
  - COLON ADENOMA [None]
  - ANXIETY [None]
  - PYREXIA [None]
  - EXOSTOSIS [None]
  - HYPERLIPIDAEMIA [None]
  - FALL [None]
  - SLEEP APNOEA SYNDROME [None]
  - CONGESTIVE CARDIOMYOPATHY [None]
  - OROPHARYNGEAL PAIN [None]
